FAERS Safety Report 19025299 (Version 2)
Quarter: 2021Q2

REPORT INFORMATION
  Report Type: Spontaneous
  Country: US (occurrence: US)
  Receive Date: 20210318
  Receipt Date: 20210420
  Transmission Date: 20210717
  Serious: No
  Sender: FDA-Public Use
  Company Number: US-GLAXOSMITHKLINE-USCH2021AMR012344

PATIENT
  Sex: Female

DRUGS (1)
  1. ROBITUSSIN NATURALS COUGH RELIEF + IMMUNE HEALTH [Suspect]
     Active Substance: DIETARY SUPPLEMENT\HERBALS
     Indication: PNEUMONIA
     Dosage: UNK

REACTIONS (2)
  - Off label use [Unknown]
  - Urticaria [Unknown]
